FAERS Safety Report 8066198-1 (Version None)
Quarter: 2012Q1

REPORT INFORMATION
  Report Type: 
  Country: None (occurrence: None)
  Receive Date: 20120124
  Receipt Date: 20120111
  Transmission Date: 20120608
  Serious: Yes (Death)
  Sender: FDA-Public Use
  Company Number: US-PFIZER INC-K200800120

PATIENT
  Age: 50 Year
  Sex: Female

DRUGS (7)
  1. PRAVASTATIN [Suspect]
     Route: 048
  2. FUROSEMIDE [Suspect]
     Route: 048
  3. QUINAPRIL [Suspect]
     Route: 048
  4. PREGABALIN [Suspect]
     Route: 048
  5. BACLOFEN [Suspect]
     Route: 048
  6. AVINZA [Suspect]
     Route: 048
  7. THIAZOLIDINEDIONE [Suspect]
     Route: 048

REACTIONS (1)
  - DEATH [None]
